FAERS Safety Report 6756764-5 (Version None)
Quarter: 2010Q2

REPORT INFORMATION
  Report Type: 
  Country: None (occurrence: None)
  Receive Date: 20100604
  Receipt Date: 20100528
  Transmission Date: 20101027
  Serious: Yes (Other)
  Sender: FDA-Public Use
  Company Number: US-JNJFOC-20100401319

PATIENT
  Sex: Female

DRUGS (2)
  1. RISPERDAL [Suspect]
     Indication: HALLUCINATION, AUDITORY
     Route: 048
  2. RISPERDAL [Suspect]
     Indication: DEPRESSION
     Route: 048

REACTIONS (3)
  - DIABETES MELLITUS [None]
  - OFF LABEL USE [None]
  - TARDIVE DYSKINESIA [None]
